FAERS Safety Report 12729801 (Version 1)
Quarter: 2016Q3

REPORT INFORMATION
  Report Type: Spontaneous
  Country: US (occurrence: US)
  Receive Date: 20160909
  Receipt Date: 20160909
  Transmission Date: 20161109
  Serious: Yes (Death, Hospitalization)
  Sender: FDA-Public Use
  Company Number: US-FRI-1000087390

PATIENT
  Sex: Female

DRUGS (1)
  1. TEFLARO [Suspect]
     Active Substance: CEFTAROLINE FOSAMIL
     Indication: URINARY TRACT INFECTION

REACTIONS (3)
  - Staphylococcal infection [Fatal]
  - Decubitus ulcer [None]
  - Death [Fatal]
